FAERS Safety Report 14349566 (Version 10)
Quarter: 2018Q2

REPORT INFORMATION
  Report Type: Spontaneous
  Country: DE (occurrence: DE)
  Receive Date: 20180104
  Receipt Date: 20180507
  Transmission Date: 20180711
  Serious: Yes (Hospitalization)
  Sender: FDA-Public Use
  Company Number: DE-AMGEN-DEUSP2018000366

PATIENT
  Sex: Female

DRUGS (37)
  1. RITUXIMAB. [Suspect]
     Active Substance: RITUXIMAB
     Dosage: 761 MG, CYCLICAL (ONCE PER CYCLE)
     Route: 042
     Dates: start: 20171218
  2. TRIMETHOPRIM SULFAMETHOXAZOLE [Concomitant]
     Active Substance: SULFAMETHOXAZOLE\TRIMETHOPRIM
     Dosage: 960 MG, (MONDAY, WEDNESDAY, FRIDAY)
     Route: 048
     Dates: start: 2017
  3. ACICLOVIR [Concomitant]
     Active Substance: ACYCLOVIR
     Indication: PROPHYLAXIS
     Dosage: 200 MG, TID
     Route: 048
     Dates: start: 20170101
  4. PEGFILGRASTIM [Suspect]
     Active Substance: PEGFILGRASTIM
     Indication: B-CELL LYMPHOMA
     Dosage: 6 MG, CYCLICAL (ONCE PER CYCLE)
     Route: 058
     Dates: start: 20171124
  5. CYCLOPHOSPHAMIDE. [Suspect]
     Active Substance: CYCLOPHOSPHAMIDE
     Indication: B-CELL LYMPHOMA
     Dosage: 1545 MG, CYCLICAL (1 IN 1 CYCLICAL)
     Route: 042
     Dates: start: 20171121
  6. PREDNISOLONE. [Suspect]
     Active Substance: PREDNISOLONE
     Indication: B-CELL LYMPHOMA
     Dosage: 100 MG, CYCLICAL (100 MG,5 IN 1 CYCLICAL)
     Route: 048
     Dates: start: 20171111
  7. BISOPROLOL [Concomitant]
     Active Substance: BISOPROLOL
     Indication: HYPERTENSION
     Dosage: 5 MG, QD (1 IN 1 D)
     Route: 048
     Dates: start: 20170101
  8. LEVOTHYROXINE SODIUM. [Concomitant]
     Active Substance: LEVOTHYROXINE SODIUM
     Indication: THYROID OPERATION
     Dosage: 150 MUG, UNK
     Route: 048
     Dates: start: 20170101
  9. TRIMETHOPRIM SULFAMETHOXAZOLE [Concomitant]
     Active Substance: SULFAMETHOXAZOLE\TRIMETHOPRIM
     Indication: PROPHYLAXIS
     Dosage: 960 MG, (MONDAY, WEDNESDAY, FRIDAY)
     Route: 048
     Dates: start: 20170101
  10. HYDROMORPHONE [Concomitant]
     Active Substance: HYDROMORPHONE
     Indication: PAIN
     Dosage: 4 MG, BID
     Route: 048
     Dates: start: 20170101
  11. PREGABALIN. [Concomitant]
     Active Substance: PREGABALIN
     Indication: POLYNEUROPATHY
     Dosage: 50 MG, TID (3 IN 1 D)
     Route: 048
  12. RITUXIMAB. [Suspect]
     Active Substance: RITUXIMAB
     Dosage: 772 MG, CYCLICAL (ONCE PER CYCLE)
     Route: 042
     Dates: start: 20171218
  13. DOXORUBICINE [Suspect]
     Active Substance: DOXORUBICIN
     Indication: B-CELL LYMPHOMA
     Dosage: 103 MG, CYCLICAL (1 IN 1 CYCLICAL)
     Route: 042
     Dates: start: 20171121
  14. AMLODIPINE [Concomitant]
     Active Substance: AMLODIPINE BESYLATE
     Dosage: 5 MG, QD (1 IN 1 D)
     Route: 048
     Dates: start: 2017
  15. VINCRISTINE [Suspect]
     Active Substance: VINCRISTINE
     Indication: B-CELL LYMPHOMA
     Dosage: 2 MG, CYCLICAL (1 IN 1 CYCLICAL)
     Route: 042
     Dates: start: 20171121
  16. TORSEMIDE. [Concomitant]
     Active Substance: TORSEMIDE
     Dosage: 10 MG, QD (1 IN 1 D)
     Route: 048
  17. CIPROFLOXACIN. [Concomitant]
     Active Substance: CIPROFLOXACIN
     Indication: NEUTROPENIA
     Dosage: 500 MG, UNK
     Route: 048
     Dates: start: 20150205
  18. RITUXIMAB. [Suspect]
     Active Substance: RITUXIMAB
     Indication: B-CELL LYMPHOMA
     Dosage: 765 MG, CYCLICAL (ONCE PER CYCLE)
     Route: 042
     Dates: start: 20171116
  19. BISOPROLOL [Concomitant]
     Active Substance: BISOPROLOL
     Dosage: 5 MG, QD
     Route: 048
     Dates: start: 2017
  20. TORSEMIDE. [Concomitant]
     Active Substance: TORSEMIDE
     Dosage: 5 MG, QD
     Route: 048
     Dates: start: 2017
  21. RAMIPRIL. [Concomitant]
     Active Substance: RAMIPRIL
     Indication: HYPERTENSION
     Dosage: 5 MG, AS NECESSARY
     Route: 048
     Dates: start: 20170101
  22. HYDROMORPHONE [Concomitant]
     Active Substance: HYDROMORPHONE
     Dosage: 8 MG, QD
     Route: 048
  23. ACICLOVIR [Concomitant]
     Active Substance: ACYCLOVIR
     Dosage: 200 MG, TID
     Route: 048
     Dates: start: 2017
  24. TORSEMIDE. [Concomitant]
     Active Substance: TORSEMIDE
     Indication: HYPERTENSION
     Dosage: 5 MG, QD
     Route: 048
     Dates: start: 20170101
  25. LEVOTHYROXINE SODIUM. [Concomitant]
     Active Substance: LEVOTHYROXINE SODIUM
     Dosage: 150 MUG, QD (1 IN 1 D)
     Route: 048
     Dates: start: 2017
  26. PANTOPRAZOL [Concomitant]
     Active Substance: PANTOPRAZOLE SODIUM
     Indication: PROPHYLAXIS
     Dosage: 40 MG, QD (1 IN 1 D)
     Route: 048
     Dates: start: 20170101
  27. INSULIN HUMAN [Concomitant]
     Active Substance: INSULIN HUMAN
     Indication: DIABETES MELLITUS
     Dosage: UNK (ACCORDING TO THE PAIN)
     Route: 048
     Dates: start: 2017
  28. INSULIN GLARGINE [Concomitant]
     Active Substance: INSULIN GLARGINE
     Indication: DIABETES MELLITUS
     Dosage: 4 IU, QD (1 IN 1 D)
     Route: 058
     Dates: start: 20171225
  29. INSULIN HUMAN [Concomitant]
     Active Substance: INSULIN HUMAN
     Dosage: UNK
     Route: 058
  30. DIPYRONE MONOHYDRATE [Concomitant]
     Active Substance: DIPYRONE
     Indication: PAIN
     Dosage: 30 GTT, QID (120 DROP)
     Route: 048
     Dates: start: 20170101
  31. TIMOLOL. [Concomitant]
     Active Substance: TIMOLOL
     Indication: OCULAR HYPERTENSION
     Dosage: UNK
     Route: 047
  32. CIPROFLOXACIN. [Concomitant]
     Active Substance: CIPROFLOXACIN
     Indication: PROPHYLAXIS
     Dosage: UNK
  33. PREDNISOLONE. [Suspect]
     Active Substance: PREDNISOLONE
     Dosage: 100 MG, CYCLICAL (5 TIMES PER CYCLE)
     Route: 048
  34. RAMIPRIL. [Concomitant]
     Active Substance: RAMIPRIL
     Dosage: 5 MG, AS NECESSARY
     Route: 048
     Dates: start: 2017
  35. AMLODIPINE [Concomitant]
     Active Substance: AMLODIPINE BESYLATE
     Indication: HYPERTENSION
     Dosage: 5 MG, QD (1 IN 1 D)
     Route: 048
     Dates: start: 20170101
  36. PANTOPRAZOL [Concomitant]
     Active Substance: PANTOPRAZOLE SODIUM
     Dosage: 40 MG, QD (1 IN 1 D)
     Route: 048
     Dates: start: 2017
  37. ENOXAPARIN SODIUM. [Concomitant]
     Active Substance: ENOXAPARIN SODIUM
     Indication: PROPHYLAXIS
     Dosage: 2 ML, QD ( 1 IN 1 D FOR 29 DAYS)
     Route: 058
     Dates: start: 20171219, end: 20180116

REACTIONS (4)
  - Urinary tract infection [Unknown]
  - Pyrexia [Recovered/Resolved]
  - Device related infection [Recovered/Resolved]
  - Infection [Recovered/Resolved]

NARRATIVE: CASE EVENT DATE: 20171219
